FAERS Safety Report 13747412 (Version 1)
Quarter: 2017Q3

REPORT INFORMATION
  Report Type: Spontaneous
  Country: KR (occurrence: KR)
  Receive Date: 20170712
  Receipt Date: 20170712
  Transmission Date: 20171127
  Serious: Yes (Life-Threatening, Hospitalization, Other)
  Sender: FDA-Public Use
  Company Number: KR-BAUSCH-BL-2017-020576

PATIENT
  Age: 22 Year
  Sex: Female

DRUGS (1)
  1. DILTIAZEM. [Suspect]
     Active Substance: DILTIAZEM
     Indication: SUICIDE ATTEMPT
     Dosage: EXTENDED RELEASE TABLET?INGESTED APPROXIMATELY 25 TABLETS OF 90 MG EXTENDED RELEASE DILTIAZAM HYDROC
     Route: 048

REACTIONS (2)
  - Intestinal ischaemia [Recovered/Resolved]
  - Suicide attempt [Recovered/Resolved]
